FAERS Safety Report 15969352 (Version 2)
Quarter: 2019Q3

REPORT INFORMATION
  Report Type: Spontaneous
  Country: IT (occurrence: IT)
  Receive Date: 20190215
  Receipt Date: 20190920
  Transmission Date: 20191004
  Serious: Yes (Hospitalization)
  Sender: FDA-Public Use
  Company Number: IT-NOVOPROD-645968

PATIENT
  Age: 35 Year
  Sex: Female

DRUGS (2)
  1. LANTUS [Suspect]
     Active Substance: INSULIN GLARGINE
     Indication: DIABETES MELLITUS
     Dosage: 15 IU, QD
     Route: 058
     Dates: start: 20180101, end: 20181223
  2. NOVORAPID [Suspect]
     Active Substance: INSULIN ASPART
     Indication: DIABETES MELLITUS
     Dosage: 31 IU, QD
     Route: 058
     Dates: start: 20180101, end: 20181223

REACTIONS (3)
  - Hypoglycaemic coma [Not Recovered/Not Resolved]
  - Hypoglycaemic seizure [Not Recovered/Not Resolved]
  - Eyelid injury [Not Recovered/Not Resolved]

NARRATIVE: CASE EVENT DATE: 20181223
